FAERS Safety Report 18620329 (Version 1)
Quarter: 2020Q4

REPORT INFORMATION
  Report Type: Spontaneous
  Country: US (occurrence: US)
  Receive Date: 20201215
  Receipt Date: 20201215
  Transmission Date: 20210114
  Serious: Yes (Hospitalization, Other)
  Sender: FDA-Public Use
  Company Number: US-HIKMA PHARMACEUTICALS USA INC.-US-H14001-20-05532

PATIENT
  Age: 12 Year
  Sex: Female
  Weight: 51.7 kg

DRUGS (7)
  1. PEGASPARGASE [Suspect]
     Active Substance: PEGASPARGASE
     Indication: ACUTE LYMPHOCYTIC LEUKAEMIA
     Route: 030
     Dates: start: 20190903
  2. METHOTREXATE. [Suspect]
     Active Substance: METHOTREXATE
     Indication: ACUTE LYMPHOCYTIC LEUKAEMIA
     Route: 037
     Dates: start: 20190820
  3. INCB018424 [Suspect]
     Active Substance: RUXOLITINIB
     Indication: ACUTE LYMPHOCYTIC LEUKAEMIA
     Route: 048
     Dates: start: 20190820
  4. VINCRISTINE [Suspect]
     Active Substance: VINCRISTINE
     Indication: ACUTE LYMPHOCYTIC LEUKAEMIA
     Route: 042
     Dates: start: 20190903
  5. CYCLOPHOSPHAMIDE. [Suspect]
     Active Substance: CYCLOPHOSPHAMIDE
     Indication: ACUTE LYMPHOCYTIC LEUKAEMIA
     Route: 042
     Dates: start: 20190820
  6. ZOFRAN [Concomitant]
     Active Substance: ONDANSETRON HYDROCHLORIDE
     Indication: PRODUCT USED FOR UNKNOWN INDICATION
     Dosage: UNKNOWN
     Route: 065
     Dates: start: 20190712
  7. MERCAPTOPURINE. [Suspect]
     Active Substance: MERCAPTOPURINE
     Indication: ACUTE LYMPHOCYTIC LEUKAEMIA
     Route: 048
     Dates: start: 20190820

REACTIONS (22)
  - Pyrexia [Recovered/Resolved]
  - Cognitive disorder [Unknown]
  - Confusional state [Recovering/Resolving]
  - White blood cell count decreased [Unknown]
  - Headache [Recovered/Resolved]
  - Anxiety [Unknown]
  - Ventricular extrasystoles [Unknown]
  - Seizure [Recovered/Resolved with Sequelae]
  - Motor dysfunction [Recovering/Resolving]
  - Dysmetria [Recovering/Resolving]
  - Nausea [Unknown]
  - Vomiting [Unknown]
  - Mental status changes [Recovering/Resolving]
  - Generalised tonic-clonic seizure [Recovering/Resolving]
  - Urticaria [Unknown]
  - Febrile neutropenia [Recovered/Resolved]
  - Rhinorrhoea [Unknown]
  - Diplopia [Unknown]
  - Drug hypersensitivity [Recovered/Resolved]
  - Throat tightness [Unknown]
  - Neurotoxicity [Recovered/Resolved with Sequelae]
  - Lip swelling [Unknown]

NARRATIVE: CASE EVENT DATE: 20190906
